FAERS Safety Report 9056090 (Version 2)
Quarter: 2013Q4

REPORT INFORMATION
  Report Type: Spontaneous
  Country: US (occurrence: US)
  Receive Date: 20130205
  Receipt Date: 20131023
  Transmission Date: 20140711
  Serious: Yes (Other)
  Sender: FDA-Public Use
  Company Number: US-BAYER-2013-014314

PATIENT
  Age: 24 Year
  Sex: Female
  Weight: 90.7 kg

DRUGS (3)
  1. MIRENA [Suspect]
     Indication: CONTRACEPTION
     Dosage: 20 MCG/24HR, CONT
     Route: 015
     Dates: start: 2008, end: 20120210
  2. ORTHO TRI-CYCLEN [Concomitant]
     Dosage: UNK
     Dates: start: 20070902
  3. ORTHO TRI-CYCLEN [Concomitant]
     Dosage: UNK
     Dates: start: 2012

REACTIONS (9)
  - Medical device complication [None]
  - Injury [None]
  - Pain [None]
  - Depression [None]
  - Anxiety [None]
  - Nervousness [None]
  - Device dislocation [None]
  - Menorrhagia [None]
  - Device dislocation [None]
